FAERS Safety Report 5318465-X (Version None)
Quarter: 2007Q2

REPORT INFORMATION
  Report Type: 
  Country: None (occurrence: None)
  Receive Date: 20070507
  Receipt Date: 20070503
  Transmission Date: 20071010
  Serious: Yes (Death)
  Sender: FDA-Public Use
  Company Number: US-GENENTECH-240981

PATIENT
  Sex: Male

DRUGS (9)
  1. RANIBIZUMAB [Suspect]
     Indication: MACULAR DEGENERATION
     Dosage: 0.5 MG, UNK
     Route: 031
     Dates: start: 20060112, end: 20060912
  2. GLEEVEC [Concomitant]
     Indication: ABDOMINAL MASS
     Dates: start: 20060830
  3. AMOXICILLIN [Concomitant]
     Indication: TOOTH ABSCESS
     Dates: start: 20060308, end: 20060318
  4. ZOLOFT [Concomitant]
     Indication: DEPRESSION
     Dates: start: 20051001
  5. FLOMAX [Concomitant]
     Indication: BENIGN PROSTATIC HYPERPLASIA
     Dates: start: 20051001
  6. BETA CAROTENE [Concomitant]
     Indication: MACULAR DEGENERATION
     Dosage: UNK, UNK, BOTH EYES
     Dates: start: 20050201
  7. BILBERRY EXTRACT [Concomitant]
     Indication: MACULAR DEGENERATION
     Dosage: UNK, UNK, RIGHT EYE
  8. SAW PALMETTO [Concomitant]
     Indication: BENIGN PROSTATIC HYPERPLASIA
     Dates: start: 20051001
  9. TIMOPTIC [Concomitant]
     Indication: INTRAOCULAR PRESSURE INCREASED
     Dosage: 0.5 %, UNK, RIGHT EYE
     Dates: start: 20051220, end: 20060104

REACTIONS (1)
  - DEATH [None]
